FAERS Safety Report 16551785 (Version 2)
Quarter: 2019Q3

REPORT INFORMATION
  Report Type: Report from Study
  Country: US (occurrence: US)
  Receive Date: 20190710
  Receipt Date: 20190823
  Transmission Date: 20191004
  Serious: Yes (Other)
  Sender: FDA-Public Use
  Company Number: US-ROCHE-2352671

PATIENT
  Sex: Male
  Weight: 36.2 kg

DRUGS (1)
  1. NUTROPIN [Suspect]
     Active Substance: SOMATROPIN
     Indication: BODY HEIGHT BELOW NORMAL
     Dosage: RESTART OF SOMATROPIN - 1.8MG 6INJ/WK
     Route: 058

REACTIONS (3)
  - Pulmonary valve stenosis [Unknown]
  - Constipation [Unknown]
  - Headache [Unknown]
